FAERS Safety Report 14612899 (Version 1)
Quarter: 2018Q1

REPORT INFORMATION
  Report Type: Spontaneous
  Country: NL (occurrence: NL)
  Receive Date: 20180308
  Receipt Date: 20180308
  Transmission Date: 20180509
  Serious: Yes (Death)
  Sender: FDA-Public Use
  Company Number: NL-JNJFOC-20180307579

PATIENT
  Age: 88 Year
  Sex: Female
  Weight: 58 kg

DRUGS (6)
  1. CICLESONIDE [Concomitant]
     Active Substance: CICLESONIDE
     Route: 065
     Dates: start: 20180118
  2. RISPERDAL [Suspect]
     Active Substance: RISPERIDONE
     Indication: NEUROPSYCHIATRIC SYMPTOMS
     Route: 065
     Dates: start: 20180120, end: 20180128
  3. TIOTROPIUM [Concomitant]
     Active Substance: TIOTROPIUM
     Route: 065
     Dates: start: 20180118
  4. COLECALCIFEROL [Concomitant]
     Active Substance: CHOLECALCIFEROL
     Route: 065
     Dates: start: 20180118
  5. METOPROLOL. [Concomitant]
     Active Substance: METOPROLOL
     Route: 065
     Dates: start: 20180118
  6. ACENOCOUMAROL [Concomitant]
     Active Substance: ACENOCOUMAROL
     Route: 065
     Dates: start: 20180118

REACTIONS (4)
  - Product use in unapproved indication [Unknown]
  - Epilepsy [Fatal]
  - Hyponatraemia [Fatal]
  - Off label use [Unknown]

NARRATIVE: CASE EVENT DATE: 20180120
